FAERS Safety Report 14188628 (Version 3)
Quarter: 2018Q1

REPORT INFORMATION
  Report Type: Report from Study
  Country: IL (occurrence: IL)
  Receive Date: 20171114
  Receipt Date: 20180227
  Transmission Date: 20180508
  Serious: Yes (Hospitalization, Other)
  Sender: FDA-Public Use
  Company Number: IL-ACTELION-A-NJ2017-162519

PATIENT
  Age: 45 Year
  Sex: Female

DRUGS (9)
  1. FUSID [Concomitant]
     Active Substance: FUROSEMIDE
  2. ALDACTONE A [Concomitant]
     Active Substance: SPIRONOLACTONE
  3. ZAROXOLYN [Concomitant]
     Active Substance: METOLAZONE
  4. VENTAVIS [Suspect]
     Active Substance: ILOPROST
     Indication: PULMONARY HYPERTENSION
     Dosage: UNK
     Route: 055
     Dates: start: 20170503, end: 20180222
  5. DIGOXIN. [Concomitant]
     Active Substance: DIGOXIN
  6. COUMADIN [Concomitant]
     Active Substance: WARFARIN SODIUM
  7. ALLORIL [Concomitant]
  8. MAGNESIUM [Concomitant]
     Active Substance: MAGNESIUM
  9. SILDENAFIL CITRATE. [Concomitant]
     Active Substance: SILDENAFIL CITRATE

REACTIONS (11)
  - Chest discomfort [Recovered/Resolved]
  - Heart valve replacement [Unknown]
  - Inappropriate schedule of drug administration [Unknown]
  - Ascites [Recovering/Resolving]
  - Condition aggravated [Recovering/Resolving]
  - Cardiac pacemaker insertion [Unknown]
  - Fluid retention [Recovering/Resolving]
  - Pain in extremity [Recovering/Resolving]
  - Fall [Unknown]
  - Bone disorder [Recovering/Resolving]
  - Ligament sprain [Recovering/Resolving]

NARRATIVE: CASE EVENT DATE: 20170503
